FAERS Safety Report 11979758 (Version 4)
Quarter: 2016Q2

REPORT INFORMATION
  Report Type: Report from Study
  Country: US (occurrence: US)
  Receive Date: 20160129
  Receipt Date: 20160428
  Transmission Date: 20160815
  Serious: Yes (Hospitalization)
  Sender: FDA-Public Use
  Company Number: US-ABBVIE-15P-163-1513427-00

PATIENT
  Age: 58 Year
  Sex: Female

DRUGS (2)
  1. HUMIRA [Suspect]
     Active Substance: ADALIMUMAB
     Indication: PSORIASIS
     Dosage: DAY 1
     Route: 058
     Dates: start: 20151129, end: 20151129
  2. HUMIRA [Suspect]
     Active Substance: ADALIMUMAB
     Route: 058
     Dates: start: 20151207

REACTIONS (8)
  - General physical condition abnormal [Unknown]
  - Alopecia [Unknown]
  - Chills [Unknown]
  - Vomiting [Unknown]
  - Pneumonia [Unknown]
  - Device issue [Unknown]
  - Psoriasis [Unknown]
  - Emotional distress [Unknown]

NARRATIVE: CASE EVENT DATE: 201511
